FAERS Safety Report 20480110 (Version 1)
Quarter: 2022Q1

REPORT INFORMATION
  Report Type: Spontaneous
  Country: US (occurrence: None)
  Receive Date: 20220215
  Receipt Date: 20220215
  Transmission Date: 20220423
  Serious: Yes (Disabling)
  Sender: FDA-Public Use
  Company Number: None

PATIENT
  Age: 66 Year
  Sex: Female
  Weight: 56.25 kg

DRUGS (10)
  1. ARTICAINE\EPINEPHRINE [Suspect]
     Active Substance: ARTICAINE\EPINEPHRINE
     Indication: Product used for unknown indication
     Route: 058
  2. LEVOXYL [Concomitant]
     Active Substance: LEVOTHYROXINE SODIUM
  3. LIIOTHYROINE [Concomitant]
  4. VITAMIN C [Concomitant]
     Active Substance: ASCORBIC ACID
  5. CALCIUM [Concomitant]
     Active Substance: CALCIUM
  6. MAGNESIUM [Concomitant]
     Active Substance: MAGNESIUM
  7. ZINC [Concomitant]
     Active Substance: ZINC
  8. ASIAN GINSENG [Concomitant]
     Active Substance: ASIAN GINSENG
  9. FISH OIL [Concomitant]
     Active Substance: FISH OIL
  10. VITAMIN D NOS [Concomitant]
     Active Substance: VITAMIN D NOS

REACTIONS (9)
  - Procedural pain [None]
  - Post procedural swelling [None]
  - Hypoaesthesia [None]
  - Infection [None]
  - Diarrhoea [None]
  - Injection site nerve damage [None]
  - Therapy non-responder [None]
  - Injection site paraesthesia [None]
  - Injection site discomfort [None]

NARRATIVE: CASE EVENT DATE: 20211020
